FAERS Safety Report 13891025 (Version 3)
Quarter: 2017Q4

REPORT INFORMATION
  Report Type: Report from Study
  Country: US (occurrence: US)
  Receive Date: 20170822
  Receipt Date: 20171026
  Transmission Date: 20180320
  Serious: Yes (Other)
  Sender: FDA-Public Use
  Company Number: PHHY2014US070050

PATIENT
  Age: 57 Year
  Sex: Female

DRUGS (6)
  1. IBUPROFEN. [Concomitant]
     Active Substance: IBUPROFEN
     Indication: BACK PAIN
     Dosage: UNK
     Route: 065
     Dates: start: 20130830
  2. FENTANYL. [Concomitant]
     Active Substance: FENTANYL
     Indication: OESOPHAGOGASTRODUODENOSCOPY
     Dosage: UNK
     Route: 065
     Dates: start: 20130420, end: 20130420
  3. VERSED [Concomitant]
     Active Substance: MIDAZOLAM HYDROCHLORIDE
     Indication: OESOPHAGOGASTRODUODENOSCOPY
     Dosage: UNK
     Route: 065
     Dates: start: 20130420, end: 20130420
  4. GILENYA [Suspect]
     Active Substance: FINGOLIMOD HYDROCHLORIDE
     Indication: MULTIPLE SCLEROSIS
     Dosage: UNK, QD
     Route: 048
  5. PROTONIX [Concomitant]
     Active Substance: PANTOPRAZOLE SODIUM
     Indication: ULCER
     Dosage: UNK
     Route: 065
     Dates: start: 20130420, end: 20130506
  6. IBUPROFEN. [Concomitant]
     Active Substance: IBUPROFEN
     Indication: PAIN

REACTIONS (16)
  - Neutropenia [Not Recovered/Not Resolved]
  - Birth mark [Not Recovered/Not Resolved]
  - Foreign body reaction [Not Recovered/Not Resolved]
  - Multiple sclerosis relapse [Recovered/Resolved]
  - Herpes zoster [Unknown]
  - Hyperlipidaemia [Not Recovered/Not Resolved]
  - Gastrooesophageal reflux disease [Not Recovered/Not Resolved]
  - Deafness unilateral [Recovered/Resolved]
  - Post herpetic neuralgia [Unknown]
  - Retinal haemorrhage [Recovered/Resolved]
  - Iron deficiency anaemia [Recovered/Resolved]
  - Dizziness [Recovered/Resolved]
  - Fatigue [Not Recovered/Not Resolved]
  - Dizziness [Recovered/Resolved]
  - Non-cardiac chest pain [Recovered/Resolved]
  - Skin depigmentation [Not Recovered/Not Resolved]

NARRATIVE: CASE EVENT DATE: 20130419
